FAERS Safety Report 7900819-6 (Version None)
Quarter: 2011Q4

REPORT INFORMATION
  Report Type: 
  Country: None (occurrence: None)
  Receive Date: 20111108
  Receipt Date: 20111103
  Transmission Date: 20120403
  Serious: Yes (Hospitalization, Other)
  Sender: FDA-Public Use
  Company Number: DE-ABBOTT-11P-062-0855984-00

PATIENT
  Sex: Male
  Weight: 64 kg

DRUGS (4)
  1. NOVALGIN [Concomitant]
     Indication: PRODUCT USED FOR UNKNOWN INDICATION
  2. OMEPRAZOLE [Concomitant]
     Indication: PRODUCT USED FOR UNKNOWN INDICATION
  3. KALETRA [Suspect]
     Indication: HIV INFECTION
     Dosage: 200/50 MG
     Dates: start: 20100310, end: 20110715
  4. TRUVADA [Concomitant]
     Indication: PRODUCT USED FOR UNKNOWN INDICATION
     Dosage: 200/245 MG

REACTIONS (8)
  - SLOW RESPONSE TO STIMULI [None]
  - MENINGITIS HERPES [None]
  - ABDOMINAL PAIN UPPER [None]
  - UNRESPONSIVE TO STIMULI [None]
  - PSYCHOMOTOR SKILLS IMPAIRED [None]
  - VOMITING [None]
  - HEADACHE [None]
  - PYREXIA [None]
